FAERS Safety Report 9285126 (Version 2)
Quarter: 2013Q3

REPORT INFORMATION
  Report Type: Spontaneous
  Country: US (occurrence: US)
  Receive Date: 20130513
  Receipt Date: 20130716
  Transmission Date: 20140515
  Serious: Yes (Death)
  Sender: FDA-Public Use
  Company Number: US-CELGENEUS-163-21880-13051070

PATIENT
  Age: 68 Year
  Sex: Male

DRUGS (5)
  1. REVLIMID [Suspect]
     Indication: PLASMA CELL MYELOMA
     Dosage: 25 MILLIGRAM
     Route: 048
     Dates: start: 201004, end: 20130503
  2. PAMIDRONATE [Concomitant]
     Indication: PLASMA CELL MYELOMA
     Route: 041
     Dates: start: 20130417, end: 20130417
  3. DEXAMETHASONE [Concomitant]
     Indication: PLASMA CELL MYELOMA
     Route: 048
     Dates: start: 20130502, end: 20130503
  4. MS CONTIN [Concomitant]
     Indication: PAIN
     Dosage: 45 MILLIGRAM
     Route: 048
     Dates: start: 20130419, end: 20130503
  5. OXYCODONE [Concomitant]
     Indication: PAIN
     Route: 065
     Dates: start: 20130419, end: 20130503

REACTIONS (1)
  - Completed suicide [Fatal]
